FAERS Safety Report 20755125 (Version 3)
Quarter: 2022Q2

REPORT INFORMATION
  Report Type: Report from Study
  Country: BR (occurrence: BR)
  Receive Date: 20220427
  Receipt Date: 20220627
  Transmission Date: 20220721
  Serious: Yes (Hospitalization)
  Sender: FDA-Public Use
  Company Number: BR-BIOGEN-2022BI01116272

PATIENT
  Age: 43 Year
  Sex: Female
  Weight: 112 kg

DRUGS (2)
  1. TYSABRI [Suspect]
     Active Substance: NATALIZUMAB
     Indication: Multiple sclerosis
     Route: 042
     Dates: start: 20220324
  2. COSENTYX [Concomitant]
     Active Substance: SECUKINUMAB
     Indication: Spondylitis
     Route: 058
     Dates: start: 2021

REACTIONS (3)
  - Multiple sclerosis relapse [Not Recovered/Not Resolved]
  - Blood iron decreased [Not Recovered/Not Resolved]
  - Urinary tract infection [Recovered/Resolved]

NARRATIVE: CASE EVENT DATE: 20220301
